FAERS Safety Report 8118772-1 (Version None)
Quarter: 2012Q1

REPORT INFORMATION
  Report Type: 
  Country: None (occurrence: None)
  Receive Date: 20120202
  Receipt Date: 20120118
  Transmission Date: 20120608
  Serious: Yes (Other)
  Sender: FDA-Public Use
  Company Number: 2012HGS-003202

PATIENT
  Age: 38 Year
  Sex: Female

DRUGS (9)
  1. RITUXIMAB (RITUXIMAB) [Concomitant]
  2. METHYLPREDNISOLONE [Concomitant]
  3. CYCLOSPORINE [Concomitant]
  4. BENLYSTA [Suspect]
     Indication: SYSTEMIC LUPUS ERYTHEMATOSUS
     Dates: start: 20111101
  5. CYCLOPHOSPHAMIDE [Concomitant]
  6. IMMUNOGLOBULINS (IMMUNOGLOBULIN) [Concomitant]
  7. METHOTREXATE [Concomitant]
  8. MYCOPHENOLATE MOFETIL [Concomitant]
  9. AZATHIOPRINE [Concomitant]

REACTIONS (5)
  - DOUBLE STRANDED DNA ANTIBODY POSITIVE [None]
  - PLATELET COUNT DECREASED [None]
  - ANAEMIA [None]
  - WHITE BLOOD CELL COUNT DECREASED [None]
  - SYSTEMIC LUPUS ERYTHEMATOSUS [None]
